FAERS Safety Report 11145263 (Version 4)
Quarter: 2015Q3

REPORT INFORMATION
  Report Type: Spontaneous
  Country: US (occurrence: US)
  Receive Date: 20150526
  Receipt Date: 20150924
  Transmission Date: 20151125
  Serious: Yes (Other)
  Sender: FDA-Public Use
  Company Number: US-PFIZER INC-2015166317

PATIENT
  Age: 65 Year
  Sex: Female
  Weight: 63 kg

DRUGS (37)
  1. NITROSTAT [Concomitant]
     Active Substance: NITROGLYCERIN
     Indication: CHEST PAIN
     Dosage: 0.4 MG, AS NEEDED (TAKE 1 TABLET SUBLINGUALLY AS NEEDED )
     Route: 060
  2. OXYCONTIN [Concomitant]
     Active Substance: OXYCODONE HYDROCHLORIDE
     Dosage: 60 MG, 3X/DAY (1 TABLET )
  3. XANAX [Concomitant]
     Active Substance: ALPRAZOLAM
     Indication: ANXIETY
     Dosage: 2 MG, 4X/DAY
  4. PAXIL HCL [Concomitant]
     Dosage: 40 MG, 1X/DAY (1 TABLET EVERY NIGHT AT BED TIME)
  5. FIORICET [Concomitant]
     Active Substance: ACETAMINOPHEN\BUTALBITAL\CAFFEINE
     Indication: MIGRAINE
     Dosage: BUTALBITAL 50MG, CAFFEINE 30 MG, PARACETAMOL 325MG, AS NEEDED (1 TABLET 3 TIMES DAILY)
  6. TYLENOL [Concomitant]
     Active Substance: ACETAMINOPHEN
     Indication: HEADACHE
  7. BIOTIN [Concomitant]
     Active Substance: BIOTIN
     Indication: ALOPECIA
     Dosage: 1000 MG, DAILY (TAKE 1 TABLET )
  8. LYRICA [Suspect]
     Active Substance: PREGABALIN
     Indication: FIBROMYALGIA
     Dosage: 100 MG, 3X/DAY
     Dates: start: 2004
  9. MORPHINE SULFATE IR [Concomitant]
     Indication: PAIN
     Dosage: 15 MG, 3X/DAY
  10. HYDROCHLOROTHIAZIDE. [Concomitant]
     Active Substance: HYDROCHLOROTHIAZIDE
     Dosage: 25 MG, 1X/DAY (1 TABLET EVERY MORNING )
  11. XYZAL [Concomitant]
     Active Substance: LEVOCETIRIZINE DIHYDROCHLORIDE
     Indication: HYPERSENSITIVITY
     Dosage: 5 MG, 1X/DAY (1 TABLET EVERY MORNING )
  12. PROTONIX SOD. [Concomitant]
     Dosage: 40 MG, 1X/DAY (1 TABLET EVERY MORNING)
  13. JANUMET [Concomitant]
     Active Substance: METFORMIN HYDROCHLORIDE\SITAGLIPTIN PHOSPHATE
     Dosage: (METFORMIN HYDROCHLORIDE 500MG, SITAGLIPTIN PHOSPHATE MONOHYDRATE 50MG),1 TABLET  2X/DAY
  14. SPIRIVA [Concomitant]
     Active Substance: TIOTROPIUM BROMIDE MONOHYDRATE
     Dosage: 18 MG, 1 INHALATION DAILY
  15. FIORICET [Concomitant]
     Active Substance: ACETAMINOPHEN\BUTALBITAL\CAFFEINE
     Indication: HEADACHE
  16. TYLENOL [Concomitant]
     Active Substance: ACETAMINOPHEN
     Indication: MIGRAINE
     Dosage: 500 MG, AS NEEDED (2-3 TABLETS)
  17. ALBUTEROL. [Concomitant]
     Active Substance: ALBUTEROL
     Indication: DYSPNOEA
     Dosage: (0.083% SOL 3ML NEPHRN-USE 1 VIAL VIA NEBULIZER EVERY 4 HOURS), AS NEEDED
  18. LYRICA [Suspect]
     Active Substance: PREGABALIN
     Indication: NEUROPATHY PERIPHERAL
  19. VITAMIN B100 COMPLEX [Concomitant]
     Indication: JOINT INJURY
     Dosage: 1 DF, DAILY
  20. CLONIDINE HCL [Concomitant]
     Active Substance: CLONIDINE HYDROCHLORIDE
     Indication: BLOOD PRESSURE INCREASED
     Dosage: 2 MG, 3X/DAY (TAKE 4TH TABLET AS NEEDED)
  21. AMBIEN [Concomitant]
     Active Substance: ZOLPIDEM TARTRATE
     Indication: INSOMNIA
     Dosage: (10MG-TAKE 1 OR 2 TABLET AT BEDTIME), AS NEEDED
  22. ZOFRAN [Concomitant]
     Active Substance: ONDANSETRON HYDROCHLORIDE
     Dosage: 4 MG, 4X/DAY (1 TABLET )
  23. MIRALAX POWDER [Concomitant]
     Dosage: 17 MG, 4X/DAY
  24. FENOFIBRATE. [Concomitant]
     Active Substance: FENOFIBRATE
     Dosage: 160 MG, 1X/DAY (1 TABLET EVERY AFTERNOON)
  25. ZETIA [Concomitant]
     Active Substance: EZETIMIBE
     Dosage: 10 MG, 1X/DAY (TAKE 1 TABLET EVERY AFTERNOON)
  26. ALBUTEROL INHALER [Concomitant]
     Active Substance: ALBUTEROL
     Indication: CHRONIC OBSTRUCTIVE PULMONARY DISEASE
     Dosage: (2 PUFFS EVERY 4 HOURS ) AS NEEDED
  27. PRAVASTATIN SODIUM. [Concomitant]
     Active Substance: PRAVASTATIN SODIUM
     Dosage: 40 MG, 1X/DAY (1 TABLET EVERY AFTERNOON)
  28. OXYGEN. [Concomitant]
     Active Substance: OXYGEN
     Dosage: UNK UNK, AS NEEDED
  29. FLEXERIL [Concomitant]
     Active Substance: CYCLOBENZAPRINE HYDROCHLORIDE
     Indication: NECK PAIN
     Dosage: 10 MG, AS NEEDED (3 TIMES DAILY)
  30. STOOL SOFTENER [Concomitant]
     Active Substance: DOCUSATE CALCIUM
     Indication: CONSTIPATION
     Dosage: 100 MG, 2 EVERY MORNING
  31. ADVAIR HFA [Concomitant]
     Active Substance: FLUTICASONE PROPIONATE\SALMETEROL XINAFOATE
     Dosage: FLUTICASONE PROPIONATE 250, SALMETEROL XINAFOATE 50), 2 PUFFS TWICE DAILY AS NEEDED
  32. ASPIRIN. [Concomitant]
     Active Substance: ASPIRIN
     Indication: ANTICOAGULANT THERAPY
  33. REGLAN [Concomitant]
     Active Substance: METOCLOPRAMIDE HYDROCHLORIDE
     Indication: NAUSEA
     Dosage: (10MG-TAKE 1 TABLET 4 TIMES DAILY), AS NEEDED
  34. VITAMIN B12 [Concomitant]
     Active Substance: CYANOCOBALAMIN
     Indication: JOINT INJURY
     Dosage: 500 MG, DAILY (1 DAILY )
  35. VITAMIN D [Concomitant]
     Active Substance: CHOLECALCIFEROL
     Dosage: 4000 IU-TAKE TABLETS EVERY
  36. NUVIGIL [Concomitant]
     Active Substance: ARMODAFINIL
     Indication: SOMNOLENCE
     Dosage: 150 MG,  2 TABLETS EVERY MORNING
  37. ASPIRIN. [Concomitant]
     Active Substance: ASPIRIN
     Indication: THROMBOSIS
     Dosage: 81 MG, DAILY

REACTIONS (18)
  - Limb discomfort [Unknown]
  - Tinnitus [Unknown]
  - Chronic obstructive pulmonary disease [Unknown]
  - Dysphagia [Unknown]
  - Iron deficiency [Unknown]
  - Blood sodium decreased [Unknown]
  - Drug ineffective [Unknown]
  - Anaemia [Unknown]
  - Neck injury [Unknown]
  - Asthenia [Unknown]
  - Blood potassium decreased [Unknown]
  - Claustrophobia [Unknown]
  - Back injury [Unknown]
  - Choking [Unknown]
  - Joint injury [Unknown]
  - Fall [Unknown]
  - Balance disorder [Unknown]
  - Incontinence [Unknown]
